FAERS Safety Report 7990460-1 (Version None)
Quarter: 2011Q4

REPORT INFORMATION
  Report Type: 
  Country: None (occurrence: None)
  Receive Date: 20111215
  Receipt Date: 20111129
  Transmission Date: 20120403
  Serious: Yes (Hospitalization, Other)
  Sender: FDA-Public Use
  Company Number: DAV-AE-MTX-11-064

PATIENT
  Age: 42 Year
  Sex: Male

DRUGS (1)
  1. METHOTREXATE [Suspect]
     Indication: PSORIASIS

REACTIONS (3)
  - COUGH [None]
  - PYREXIA [None]
  - LYMPHOMA [None]
